FAERS Safety Report 8550270 (Version 2)
Quarter: 2012Q4

REPORT INFORMATION
  Report Type: Report from Study
  Country: PL (occurrence: PL)
  Receive Date: 20120507
  Receipt Date: 20120904
  Transmission Date: 20130627
  Serious: Yes (Life-Threatening, Hospitalization, Other)
  Sender: FDA-Public Use
  Company Number: PL-ROCHE-1065098

PATIENT
  Age: 71 None
  Sex: Male
  Weight: 71.1 kg

DRUGS (6)
  1. RANIBIZUMAB [Suspect]
     Indication: DIABETIC RETINAL OEDEMA
     Route: 050
     Dates: start: 20110303, end: 20110303
  2. RANIBIZUMAB [Suspect]
     Route: 050
     Dates: start: 20120126, end: 20120126
  3. PLAVIX [Concomitant]
     Dates: start: 20101014, end: 20120417
  4. ACARD [Concomitant]
     Dates: start: 20101014
  5. HYDROCHLOROTHIAZIDE [Concomitant]
     Dates: start: 20120205, end: 20120417
  6. FUROSEMIDE [Concomitant]
     Dates: start: 20120205, end: 20120417

REACTIONS (5)
  - Acute respiratory failure [Unknown]
  - Basal cell carcinoma [Unknown]
  - Bradycardia [Unknown]
  - Ventricular tachycardia [Unknown]
  - Renal failure chronic [Unknown]
